FAERS Safety Report 4577611-6 (Version None)
Quarter: 2005Q1

REPORT INFORMATION
  Report Type: 
  Country: None (occurrence: None)
  Receive Date: 20050208
  Receipt Date: 20050127
  Transmission Date: 20050727
  Serious: No
  Sender: FDA-Public Use
  Company Number: 2005AP00617

PATIENT
  Age: 72 Year
  Sex: Male

DRUGS (1)
  1. DIPRIVAN [Suspect]
     Indication: SEDATION
     Dosage: 10-12 ML/HR
     Dates: start: 20050107, end: 20050125

REACTIONS (2)
  - DELAYED RECOVERY FROM ANAESTHESIA [None]
  - SOMNOLENCE [None]
